FAERS Safety Report 15891408 (Version 2)
Quarter: 2020Q1

REPORT INFORMATION
  Report Type: Spontaneous
  Country: US (occurrence: US)
  Receive Date: 20190130
  Receipt Date: 20200212
  Transmission Date: 20200409
  Serious: No
  Sender: FDA-Public Use
  Company Number: US-ALLERGAN-1851632US

PATIENT
  Sex: Male

DRUGS (1)
  1. VIIBRYD [Suspect]
     Active Substance: VILAZODONE HYDROCHLORIDE
     Indication: DEPRESSION
     Dosage: ACTUAL: ONLY TOOK 10 MG, CUT THEM IN HALF
     Route: 065
     Dates: start: 201808

REACTIONS (2)
  - Off label use [Unknown]
  - Wrong technique in product usage process [Unknown]
